FAERS Safety Report 16629429 (Version 1)
Quarter: 2019Q3

REPORT INFORMATION
  Report Type: Spontaneous
  Country: US (occurrence: US)
  Receive Date: 20190612
  Receipt Date: 20190612
  Transmission Date: 20191004
  Serious: No
  Sender: FDA-Public Use
  Company Number: None

PATIENT
  Age: 58 Year
  Sex: Female
  Weight: 73.03 kg

DRUGS (4)
  1. REPATHA [Suspect]
     Active Substance: EVOLOCUMAB
     Indication: HYPERLIPIDAEMIA
     Route: 058
     Dates: start: 201702
  2. REPATHA [Suspect]
     Active Substance: EVOLOCUMAB
     Indication: FAMILIAL RISK FACTOR
     Route: 058
     Dates: start: 201702
  3. REPATHA [Suspect]
     Active Substance: EVOLOCUMAB
     Indication: PERIPHERAL VASCULAR DISORDER
     Route: 058
     Dates: start: 201702
  4. REPATHA [Suspect]
     Active Substance: EVOLOCUMAB
     Indication: TYPE 2 DIABETES MELLITUS
     Route: 058
     Dates: start: 201702

REACTIONS (2)
  - Limb operation [None]
  - Hyperlipidaemia [None]
